FAERS Safety Report 5086194-6 (Version None)
Quarter: 2006Q3

REPORT INFORMATION
  Report Type: 
  Country: None (occurrence: None)
  Receive Date: 20060818
  Receipt Date: 20060809
  Transmission Date: 20061208
  Serious: No
  Sender: FDA-Public Use
  Company Number: GB-2006-019067

PATIENT
  Sex: Female

DRUGS (1)
  1. MIRENA [Suspect]
     Indication: CONTRACEPTION
     Dosage: 20 UG/DAY, INTRA-UTERINE
     Route: 015
     Dates: start: 20040901

REACTIONS (26)
  - ABDOMINAL DISTENSION [None]
  - ABDOMINAL PAIN UPPER [None]
  - ACNE [None]
  - ACNE CYSTIC [None]
  - ALOPECIA [None]
  - BACK PAIN [None]
  - BREAST PAIN [None]
  - BREAST SWELLING [None]
  - DEPRESSION [None]
  - DISTURBANCE IN ATTENTION [None]
  - FATIGUE [None]
  - HEADACHE [None]
  - LOSS OF LIBIDO [None]
  - MOOD SWINGS [None]
  - NIGHT SWEATS [None]
  - OILY SKIN [None]
  - OVARIAN CYST [None]
  - PREMENSTRUAL SYNDROME [None]
  - PRURITUS [None]
  - RASH ERYTHEMATOUS [None]
  - SEBORRHOEA [None]
  - SKIN DISORDER [None]
  - SOMNOLENCE [None]
  - VAGINAL HAEMORRHAGE [None]
  - WEIGHT DECREASED [None]
  - WEIGHT INCREASED [None]
